FAERS Safety Report 17356548 (Version 2)
Quarter: 2020Q1

REPORT INFORMATION
  Report Type: Spontaneous
  Country: US (occurrence: US)
  Receive Date: 20200131
  Receipt Date: 20200214
  Transmission Date: 20200409
  Serious: No
  Sender: FDA-Public Use
  Company Number: US-JNJFOC-20200131925

PATIENT
  Age: 23 Year
  Sex: Female
  Weight: 127.12 kg

DRUGS (4)
  1. XARELTO [Suspect]
     Active Substance: RIVAROXABAN
     Indication: PRODUCT USED FOR UNKNOWN INDICATION
     Route: 048
  2. REMODULIN [Suspect]
     Active Substance: TREPROSTINIL
     Indication: PULMONARY ARTERIAL HYPERTENSION
     Route: 041
     Dates: start: 201912
  3. OPSUMIT [Concomitant]
     Active Substance: MACITENTAN
  4. REMODULIN [Suspect]
     Active Substance: TREPROSTINIL
     Route: 058

REACTIONS (6)
  - Dermatitis contact [Unknown]
  - Dizziness postural [Unknown]
  - Medical device site haemorrhage [Unknown]
  - Head discomfort [Unknown]
  - Nausea [Unknown]
  - Headache [Not Recovered/Not Resolved]

NARRATIVE: CASE EVENT DATE: 201912
